FAERS Safety Report 8012819-9 (Version None)
Quarter: 2011Q4

REPORT INFORMATION
  Report Type: 
  Country: None (occurrence: None)
  Receive Date: 20111223
  Receipt Date: 20111223
  Transmission Date: 20120403
  Serious: Yes (Life-Threatening, Hospitalization, Disabling, Other)
  Sender: FDA-Public Use
  Company Number: None

PATIENT
  Age: 29 Year
  Sex: Male
  Weight: 133.8111 kg

DRUGS (1)
  1. KLONOPIN [Suspect]
     Indication: ANXIETY
     Dosage: 2 MG. A DAY 047
     Route: 048
     Dates: start: 19950713, end: 19960111

REACTIONS (4)
  - WEIGHT INCREASED [None]
  - DISSOCIATION [None]
  - WITHDRAWAL SYNDROME [None]
  - SUICIDE ATTEMPT [None]
